FAERS Safety Report 14979658 (Version 1)
Quarter: 2018Q2

REPORT INFORMATION
  Report Type: Spontaneous
  Country: DE (occurrence: DE)
  Receive Date: 20180606
  Receipt Date: 20180606
  Transmission Date: 20180711
  Serious: Yes (Other)
  Sender: FDA-Public Use
  Company Number: DE-PFIZER INC-2018224106

PATIENT
  Age: 79 Year
  Sex: Male

DRUGS (4)
  1. LORAZEPAM. [Suspect]
     Active Substance: LORAZEPAM
  2. TRAMADOLOR [Concomitant]
     Active Substance: TRAMADOL
     Dosage: 70 GTT, 1X/DAY, IN THE MORNING AND EVENING
  3. TILIDINE [Concomitant]
     Active Substance: TILIDINE
  4. PREGABALIN BETA [Interacting]
     Active Substance: PREGABALIN
     Indication: DIABETIC NEUROPATHY
     Dosage: 150 MG, 1X/DAY
     Route: 048
     Dates: start: 20180417

REACTIONS (3)
  - Somnolence [Not Recovered/Not Resolved]
  - Blood glucose increased [Unknown]
  - Drug interaction [Not Recovered/Not Resolved]

NARRATIVE: CASE EVENT DATE: 20180419
